FAERS Safety Report 8765504 (Version 2)
Quarter: 2012Q4

REPORT INFORMATION
  Report Type: 
  Country: IT (occurrence: IT)
  Receive Date: 20120903
  Receipt Date: 20120920
  Transmission Date: 20130627
  Serious: Yes (Hospitalization)
  Sender: FDA-Public Use
  Company Number: IT-PFIZER INC-2012214700

PATIENT
  Age: 66 Year
  Sex: Female

DRUGS (3)
  1. TAVOR [Suspect]
     Dosage: 20 DF, total dose
     Route: 048
     Dates: start: 20120827, end: 20120827
  2. HALCION [Suspect]
     Dosage: 30 DF, total dose
     Route: 048
     Dates: start: 20120827, end: 20120827
  3. DOMINANS [Concomitant]
     Indication: INTENTIONAL SELF-INJURY
     Dosage: 45 DF, total dose
     Route: 048
     Dates: start: 20120827, end: 20120827

REACTIONS (5)
  - Intentional overdose [Recovering/Resolving]
  - Suicide attempt [Recovering/Resolving]
  - Bradykinesia [Recovering/Resolving]
  - Bradyphrenia [Recovering/Resolving]
  - Sopor [Recovering/Resolving]
